FAERS Safety Report 14033091 (Version 12)
Quarter: 2020Q3

REPORT INFORMATION
  Report Type: Spontaneous
  Country: US (occurrence: US)
  Receive Date: 20171002
  Receipt Date: 20200709
  Transmission Date: 20201102
  Serious: Yes (Hospitalization, Other)
  Sender: FDA-Public Use
  Company Number: US-PFIZER INC-2017422132

PATIENT
  Age: 76 Year
  Sex: Female
  Weight: 95 kg

DRUGS (6)
  1. LYRICA [Suspect]
     Active Substance: PREGABALIN
     Indication: TRIGEMINAL NEURALGIA
     Dosage: 150 MG, 2X/DAY
  2. ARTHROTEC [Suspect]
     Active Substance: DICLOFENAC SODIUM\MISOPROSTOL
     Dosage: UNK, 1X/DAY (50MG ?200 MCG TABLETS)
     Route: 048
  3. LYRICA [Suspect]
     Active Substance: PREGABALIN
     Indication: AUTOIMMUNE HEPATITIS
     Dosage: 300 MG, DAILY (300MG/DAY)
  4. HYDROCODONE [Concomitant]
     Active Substance: HYDROCODONE
     Indication: ANALGESIC THERAPY
     Dosage: UNK
  5. LYRICA [Suspect]
     Active Substance: PREGABALIN
     Indication: NEURALGIA
     Dosage: 150 MG, 2X/DAY
     Route: 048
     Dates: start: 201203
  6. ARTHROTEC [Suspect]
     Active Substance: DICLOFENAC SODIUM\MISOPROSTOL
     Indication: COSTOCHONDRITIS
     Dosage: UNK, 2X/DAY
     Dates: start: 2017

REACTIONS (18)
  - Memory impairment [Recovered/Resolved]
  - Product use in unapproved indication [Unknown]
  - Dyspnoea [Unknown]
  - Spinal cord injury [Recovered/Resolved]
  - Drug dependence [Recovered/Resolved]
  - Trismus [Recovered/Resolved]
  - Chest discomfort [Recovered/Resolved]
  - Trigeminal nerve disorder [Recovered/Resolved]
  - Gastric ulcer [Unknown]
  - Condition aggravated [Recovered/Resolved]
  - Scoliosis [Not Recovered/Not Resolved]
  - Choking [Recovered/Resolved]
  - Autoimmune thyroiditis [Recovered/Resolved]
  - Cardiac disorder [Unknown]
  - Off label use [Unknown]
  - Fall [Unknown]
  - Cerebrospinal fluid leakage [Recovered/Resolved]
  - Movement disorder [Unknown]

NARRATIVE: CASE EVENT DATE: 2017
